FAERS Safety Report 6164783-5 (Version None)
Quarter: 2009Q2

REPORT INFORMATION
  Report Type: 
  Country: None (occurrence: None)
  Receive Date: 20090423
  Receipt Date: 20090417
  Transmission Date: 20091009
  Serious: Yes (Hospitalization)
  Sender: FDA-Public Use
  Company Number: US-B.I. PHARMACEUTICALS,INC./RIDGEFIELD-2009-BP-01352BP

PATIENT
  Sex: Male

DRUGS (16)
  1. SPIRIVA [Suspect]
     Indication: ASTHMA
     Dosage: 18MCG
     Route: 055
     Dates: start: 20040101
  2. SPIRIVA [Suspect]
     Indication: CHRONIC OBSTRUCTIVE PULMONARY DISEASE
  3. TIZANIDINE HCL [Concomitant]
  4. MELOXICAM [Concomitant]
  5. FUROSEMINE [Concomitant]
  6. PLAVIX [Concomitant]
  7. NEXIUM [Concomitant]
  8. GLYURIDE [Concomitant]
  9. CLONIDINE [Concomitant]
  10. AMITRIPTLINE HYDROCHLORIDE TAB [Concomitant]
  11. COZAAR [Concomitant]
  12. ALPRAZOLAM [Concomitant]
  13. JANUVIA [Concomitant]
  14. VERAPAMIL [Concomitant]
  15. TRAZODONE [Concomitant]
  16. COMBIVENT [Concomitant]

REACTIONS (3)
  - DYSPNOEA [None]
  - EXTRASYSTOLES [None]
  - LOSS OF CONSCIOUSNESS [None]
